FAERS Safety Report 13851596 (Version 1)
Quarter: 2017Q3

REPORT INFORMATION
  Report Type: Spontaneous
  Country: CN (occurrence: CN)
  Receive Date: 20170809
  Receipt Date: 20170809
  Transmission Date: 20171127
  Serious: Yes (Hospitalization)
  Sender: FDA-Public Use
  Company Number: CN-PFIZER INC-2017340731

PATIENT
  Age: 3 Year
  Sex: Female

DRUGS (2)
  1. ZITHROMAX [Suspect]
     Active Substance: AZITHROMYCIN DIHYDRATE
     Dosage: 150 MG, 1X/DAY
     Route: 048
     Dates: start: 20170624, end: 20170624
  2. ZITHROMAX [Suspect]
     Active Substance: AZITHROMYCIN DIHYDRATE
     Indication: PNEUMONIA
     Dosage: 150 MG, 1X/DAY
     Route: 048
     Dates: start: 20170617, end: 20170619

REACTIONS (4)
  - Seizure [Recovering/Resolving]
  - Somnolence [Recovering/Resolving]
  - Tic [Recovering/Resolving]
  - Muscle twitching [Recovering/Resolving]

NARRATIVE: CASE EVENT DATE: 20170624
